FAERS Safety Report 14507133 (Version 2)
Quarter: 2018Q1

REPORT INFORMATION
  Report Type: Spontaneous
  Country: GB (occurrence: NO)
  Receive Date: 20180208
  Receipt Date: 20180222
  Transmission Date: 20180509
  Serious: Yes (Death, Life-Threatening, Hospitalization)
  Sender: FDA-Public Use
  Company Number: NO-FRESENIUS KABI-FK201801338

PATIENT
  Age: 70 Year
  Sex: Male
  Weight: 42 kg

DRUGS (2)
  1. GEMCITABINE [Suspect]
     Active Substance: GEMCITABINE\GEMCITABINE HYDROCHLORIDE
     Indication: INFECTION
     Route: 042
     Dates: start: 20171031
  2. CARBOPLATIN (MANUFACTURER UNKNOWN) [Suspect]
     Active Substance: CARBOPLATIN
     Indication: INFECTION
     Route: 042
     Dates: start: 20171031

REACTIONS (1)
  - Septic shock [Fatal]

NARRATIVE: CASE EVENT DATE: 20171115
